FAERS Safety Report 20119603 (Version 2)
Quarter: 2022Q1

REPORT INFORMATION
  Report Type: Spontaneous
  Country: AR (occurrence: AR)
  Receive Date: 20211126
  Receipt Date: 20220129
  Transmission Date: 20220423
  Serious: Yes (Other)
  Sender: FDA-Public Use
  Company Number: AR-NOVARTISPH-NVSC2021AR268517

PATIENT
  Age: 55 Year

DRUGS (1)
  1. SECUKINUMAB [Suspect]
     Active Substance: SECUKINUMAB
     Indication: Psoriasis
     Dosage: UNK, STARTED 1 YEAR AGO
     Route: 065

REACTIONS (3)
  - Myasthenia gravis [Unknown]
  - Eyelid ptosis [Unknown]
  - Diplopia [Unknown]
